FAERS Safety Report 21043261 (Version 1)
Quarter: 2022Q3

REPORT INFORMATION
  Report Type: Spontaneous
  Country: US (occurrence: None)
  Receive Date: 20220704
  Receipt Date: 20220704
  Transmission Date: 20221027
  Serious: No
  Sender: FDA-Public Use
  Company Number: None

PATIENT
  Sex: Female

DRUGS (1)
  1. HUMIRA [Suspect]
     Active Substance: ADALIMUMAB
     Indication: Arthritis
     Dosage: 40 MG EVERY TWO WEEKS SUBCUTANEOUS?
     Route: 058
     Dates: start: 202204

REACTIONS (4)
  - Rash [None]
  - Peripheral swelling [None]
  - Hypoaesthesia [None]
  - Peripheral swelling [None]
